FAERS Safety Report 7213434-7 (Version None)
Quarter: 2011Q1

REPORT INFORMATION
  Report Type: 
  Country: None (occurrence: None)
  Receive Date: 20110106
  Receipt Date: 20101227
  Transmission Date: 20110831
  Serious: Yes (Hospitalization)
  Sender: FDA-Public Use
  Company Number: JP-EISAI INC.-E2020-08265-SPO-JP

PATIENT
  Age: 68 Year
  Sex: Male
  Weight: 58 kg

DRUGS (7)
  1. ABILIFY [Concomitant]
     Route: 048
  2. MAGMITT [Concomitant]
     Route: 048
  3. PURSENNID [Concomitant]
     Indication: CONSTIPATION
     Route: 048
  4. ARICEPT [Suspect]
     Indication: DEMENTIA ALZHEIMER'S TYPE
     Dosage: UNKNOWN
     Route: 048
     Dates: end: 20101212
  5. LIMAS [Concomitant]
     Route: 048
  6. ARICEPT [Suspect]
     Route: 048
     Dates: start: 20101213, end: 20101222
  7. AMOBAN [Concomitant]
     Indication: INSOMNIA
     Route: 048

REACTIONS (2)
  - ASTHENIA [None]
  - RHABDOMYOLYSIS [None]
